FAERS Safety Report 5663159-4 (Version None)
Quarter: 2008Q1

REPORT INFORMATION
  Report Type: 
  Country: None (occurrence: None)
  Receive Date: 20080313
  Receipt Date: 20080305
  Transmission Date: 20080703
  Serious: Yes (Other)
  Sender: FDA-Public Use
  Company Number: GB-PFIZER INC-2008021798

PATIENT
  Age: 39 Year
  Sex: Female
  Weight: 65 kg

DRUGS (4)
  1. CHANTIX [Suspect]
     Route: 048
     Dates: start: 20071105, end: 20071203
  2. CO-CODAMOL [Concomitant]
     Indication: PAIN
     Route: 048
  3. GABAPENTIN [Concomitant]
     Indication: TREMOR
     Route: 048
     Dates: start: 20070809, end: 20071201
  4. ZOLADEX [Concomitant]
     Indication: MENSTRUATION IRREGULAR
     Dates: start: 20060619, end: 20070910

REACTIONS (3)
  - CONSTIPATION [None]
  - DEPRESSED MOOD [None]
  - SUICIDAL IDEATION [None]
